FAERS Safety Report 4330829-X (Version None)
Quarter: 2004Q1

REPORT INFORMATION
  Report Type: 
  Country: None (occurrence: None)
  Receive Date: 20040331
  Receipt Date: 20040312
  Transmission Date: 20041129
  Serious: Yes (Death, Hospitalization, Other)
  Sender: FDA-Public Use
  Company Number: US_0403101560

PATIENT
  Age: 68 Year
  Sex: Male
  Weight: 80 kg

DRUGS (10)
  1. VANCOMYCIN [Suspect]
     Indication: STAPHYLOCOCCAL BACTERAEMIA
     Dates: end: 20030323
  2. INTERFERON GAMMA-1B [Concomitant]
  3. COUMADIN [Concomitant]
  4. LANOXIN [Concomitant]
  5. APO-METOPROLOL (METOPROLOL TARTRATE) [Concomitant]
  6. PLAVIX [Concomitant]
  7. ASPIRIN [Concomitant]
  8. LASIX [Concomitant]
  9. LISINOPRIL [Concomitant]
  10. GLIPIZIDE [Concomitant]

REACTIONS (26)
  - ANAEMIA [None]
  - ASCITES [None]
  - ATRIAL FIBRILLATION [None]
  - BLOOD POTASSIUM INCREASED [None]
  - DIASTOLIC DYSFUNCTION [None]
  - ECHOCARDIOGRAM ABNORMAL [None]
  - FATIGUE [None]
  - GENERAL PHYSICAL HEALTH DETERIORATION [None]
  - GENERALISED OEDEMA [None]
  - HEPATIC ENCEPHALOPATHY [None]
  - HEPATIC FAILURE [None]
  - HYPONATRAEMIA [None]
  - HYPOXIA [None]
  - LETHARGY [None]
  - LEUKOCYTOSIS [None]
  - MENTAL STATUS CHANGES [None]
  - MITRAL VALVE INCOMPETENCE [None]
  - MULTI-ORGAN FAILURE [None]
  - OEDEMA [None]
  - OEDEMA PERIPHERAL [None]
  - RENAL FAILURE [None]
  - RESTLESSNESS [None]
  - SEDATION [None]
  - SEPSIS [None]
  - URINE OUTPUT DECREASED [None]
  - WEIGHT INCREASED [None]
